FAERS Safety Report 6713343-3 (Version None)
Quarter: 2010Q2

REPORT INFORMATION
  Report Type: 
  Country: None (occurrence: None)
  Receive Date: 20100503
  Receipt Date: 20100419
  Transmission Date: 20101027
  Serious: Yes (Other)
  Sender: FDA-Public Use
  Company Number: 2010AP000802

PATIENT
  Age: 63 Year
  Sex: Male

DRUGS (1)
  1. OMEPRAZOLE [Suspect]
     Dosage: 10 MG;PO;QD
     Route: 048
     Dates: start: 20100311, end: 20100314

REACTIONS (3)
  - CONSTIPATION [None]
  - JOINT STIFFNESS [None]
  - PAIN IN EXTREMITY [None]
